FAERS Safety Report 26008864 (Version 1)
Quarter: 2025Q4

REPORT INFORMATION
  Report Type: Spontaneous
  Country: CN (occurrence: CN)
  Receive Date: 20251106
  Receipt Date: 20251106
  Transmission Date: 20260118
  Serious: Yes (Death, Life-Threatening, Other)
  Sender: PHARMOBEDIENT CONSULTING, LLC
  Company Number: CN-Pharmobedient-000423

PATIENT
  Age: 47 Year
  Sex: Female

DRUGS (3)
  1. CISPLATIN [Suspect]
     Active Substance: CISPLATIN
     Indication: Lung adenocarcinoma stage IV
     Dosage: 4 CYCLES
  2. PEMETREXED DISODIUM [Suspect]
     Active Substance: PEMETREXED DISODIUM
     Indication: Lung adenocarcinoma stage IV
     Dosage: 4 CYCLES
  3. BEVACIZUMAB [Suspect]
     Active Substance: BEVACIZUMAB
     Indication: Lung adenocarcinoma stage IV
     Dosage: 4 CYCLES

REACTIONS (3)
  - Vascular pseudoaneurysm ruptured [Fatal]
  - Haemoptysis [Fatal]
  - Obstructive airways disorder [Fatal]

NARRATIVE: CASE EVENT DATE: 20240215
